FAERS Safety Report 6406714-6 (Version None)
Quarter: 2009Q4

REPORT INFORMATION
  Report Type: 
  Country: None (occurrence: None)
  Receive Date: 20091020
  Receipt Date: 20091012
  Transmission Date: 20100525
  Serious: Yes (Hospitalization)
  Sender: FDA-Public Use
  Company Number: US-ELI_LILLY_AND_COMPANY-US200910002505

PATIENT
  Sex: Female
  Weight: 80.726 kg

DRUGS (2)
  1. BYETTA [Suspect]
     Indication: TYPE 2 DIABETES MELLITUS
     Dosage: 5 UG, 2/D
     Route: 058
     Dates: start: 20090901
  2. GLIPIZIDE [Concomitant]
     Indication: TYPE 2 DIABETES MELLITUS
     Dosage: UNK, DAILY (1/D)

REACTIONS (7)
  - CHEST PAIN [None]
  - DECREASED APPETITE [None]
  - DIZZINESS [None]
  - MUSCULOSKELETAL PAIN [None]
  - MYOCARDIAL INFARCTION [None]
  - NAUSEA [None]
  - WEIGHT DECREASED [None]
